FAERS Safety Report 16343989 (Version 1)
Quarter: 2019Q2

REPORT INFORMATION
  Report Type: Spontaneous
  Country: US (occurrence: US)
  Receive Date: 20190522
  Receipt Date: 20190522
  Transmission Date: 20190711
  Serious: No
  Sender: FDA-Public Use
  Company Number: US-ANIPHARMA-2019-US-002071

PATIENT
  Age: 55 Year
  Sex: Female
  Weight: 72.58 kg

DRUGS (4)
  1. INDERAL XL [Suspect]
     Active Substance: PROPRANOLOL HYDROCHLORIDE
     Indication: HYPERTENSION
     Dosage: TAKES ONCE DAILY
     Route: 048
     Dates: start: 20190110
  2. PROPRANOLOL EXTENDED RELEASE 120 MG MANUFACTUREED BY BRECKENRIDGE [Suspect]
     Active Substance: PROPRANOLOL HYDROCHLORIDE
     Dosage: TOOK ONCE DAILY
     Dates: start: 20190108, end: 20190110
  3. NORVASC [Concomitant]
     Active Substance: AMLODIPINE BESYLATE
  4. OMEPRAZOLE. [Concomitant]
     Active Substance: OMEPRAZOLE

REACTIONS (4)
  - Cough [Not Recovered/Not Resolved]
  - Drug ineffective [Not Recovered/Not Resolved]
  - Blood pressure increased [Not Recovered/Not Resolved]
  - Chest discomfort [Not Recovered/Not Resolved]

NARRATIVE: CASE EVENT DATE: 20190110
